FAERS Safety Report 17785922 (Version 1)
Quarter: 2020Q2

REPORT INFORMATION
  Report Type: Report from Study
  Country: US (occurrence: US)
  Receive Date: 20200513
  Receipt Date: 20200513
  Transmission Date: 20200714
  Serious: Yes (Hospitalization)
  Sender: FDA-Public Use
  Company Number: US-ACTELION-A-NJ2020-205115

PATIENT
  Sex: Female
  Weight: 46.71 kg

DRUGS (1)
  1. OPSUMIT [Suspect]
     Active Substance: MACITENTAN
     Indication: PULMONARY HYPERTENSION
     Dosage: 10 MG, QD
     Route: 048

REACTIONS (5)
  - Hysterectomy [Unknown]
  - Rectal prolapse repair [Unknown]
  - Rectal prolapse [Unknown]
  - Fluid retention [Recovered/Resolved]
  - Oedema [Recovered/Resolved]
